FAERS Safety Report 9746495 (Version 5)
Quarter: 2014Q3

REPORT INFORMATION
  Report Type: Spontaneous
  Country: US (occurrence: US)
  Receive Date: 20131211
  Receipt Date: 20140813
  Transmission Date: 20150326
  Serious: Yes (Hospitalization, Other)
  Sender: FDA-Public Use
  Company Number: US-BAYER-2013-150603

PATIENT
  Age: 24 Year
  Sex: Female
  Weight: 63 kg

DRUGS (5)
  1. PARAGARD T380A [Concomitant]
     Active Substance: COPPER
  2. GIANVI [Suspect]
     Active Substance: DROSPIRENONE\ETHINYL ESTRADIOL
     Indication: CONTRACEPTION
     Dosage: UNK
  3. OCELLA [Suspect]
     Active Substance: DROSPIRENONE\ETHINYL ESTRADIOL
     Indication: ACNE
  4. YAZ [Suspect]
     Active Substance: DROSPIRENONE\ETHINYL ESTRADIOL
  5. GIANVI [Suspect]
     Active Substance: DROSPIRENONE\ETHINYL ESTRADIOL
     Indication: ACNE
     Dosage: UNK
     Dates: start: 20110128, end: 20120705

REACTIONS (10)
  - Pulmonary embolism [None]
  - Amnesia [None]
  - Cerebrovascular accident [None]
  - Speech disorder [None]
  - Gait disturbance [None]
  - Non-consummation [None]
  - Pain [None]
  - Thrombosis [None]
  - Injury [None]
  - Hypoaesthesia [None]

NARRATIVE: CASE EVENT DATE: 201102
